FAERS Safety Report 21507354 (Version 1)
Quarter: 2022Q4

REPORT INFORMATION
  Report Type: Spontaneous
  Country: US (occurrence: None)
  Receive Date: 20221025
  Receipt Date: 20221025
  Transmission Date: 20230112
  Serious: No
  Sender: FDA-Public Use
  Company Number: None

PATIENT
  Age: 53 Year
  Sex: Female
  Weight: 70.99 kg

DRUGS (5)
  1. IBRANCE [Suspect]
     Active Substance: PALBOCICLIB
     Dosage: OTHER FREQUENCY : 3W, 1W OFF;?
     Route: 048
  2. DIFLUPREDNATE [Concomitant]
     Active Substance: DIFLUPREDNATE
  3. DURAGESIC [Concomitant]
     Active Substance: FENTANYL
  4. OFLOXACIN [Concomitant]
     Active Substance: OFLOXACIN
  5. PROLENSA [Concomitant]
     Active Substance: BROMFENAC SODIUM

REACTIONS (2)
  - COVID-19 [None]
  - Therapy interrupted [None]
